FAERS Safety Report 5093521-2 (Version None)
Quarter: 2006Q3

REPORT INFORMATION
  Report Type: 
  Country: None (occurrence: None)
  Receive Date: 20060731
  Receipt Date: 20060416
  Transmission Date: 20061208
  Serious: No
  Sender: FDA-Public Use
  Company Number: 2006PV012054

PATIENT
  Age: 62 Year
  Sex: Male
  Weight: 106.5953 kg

DRUGS (3)
  1. BYETTA [Suspect]
     Indication: DIABETES MELLITUS NON-INSULIN-DEPENDENT
     Dosage: 5 MCG; BID; SC
     Route: 058
     Dates: start: 20060221
  2. ACTOS [Concomitant]
  3. METFORMIN [Concomitant]

REACTIONS (5)
  - BLOOD GLUCOSE INCREASED [None]
  - DYSPEPSIA [None]
  - ERUCTATION [None]
  - GASTROOESOPHAGEAL REFLUX DISEASE [None]
  - SINUSITIS [None]
